FAERS Safety Report 20565193 (Version 1)
Quarter: 2022Q1

REPORT INFORMATION
  Report Type: Spontaneous
  Country: IN (occurrence: IN)
  Receive Date: 20220308
  Receipt Date: 20220308
  Transmission Date: 20220423
  Serious: Yes (Death, Hospitalization, Other)
  Sender: FDA-Public Use
  Company Number: IN-ASTELLAS-2022US008060

PATIENT
  Age: 62 Year
  Sex: Male

DRUGS (2)
  1. ENFORTUMAB VEDOTIN [Suspect]
     Active Substance: ENFORTUMAB VEDOTIN
     Indication: Bladder cancer stage 0, with cancer in situ
     Dosage: 1.25 MG/KG, CYCLIC (ON DAYS 1 AND 8 OF THE FIRST CYCLE)
     Route: 065
     Dates: start: 20201019, end: 202010
  2. ENFORTUMAB VEDOTIN [Suspect]
     Active Substance: ENFORTUMAB VEDOTIN
     Dosage: UNK UNK, UNKNOWN FREQ. (SECOND INFUSION GIVEN A WEEK LATER)
     Route: 065
     Dates: start: 202010

REACTIONS (4)
  - Multiple organ dysfunction syndrome [Fatal]
  - Toxic epidermal necrolysis [Fatal]
  - Hypotension [Fatal]
  - Septic shock [Fatal]

NARRATIVE: CASE EVENT DATE: 20200101
